FAERS Safety Report 4282883-1 (Version None)
Quarter: 2004Q1

REPORT INFORMATION
  Report Type: 
  Country: None (occurrence: None)
  Receive Date: 20040130
  Receipt Date: 20030908
  Transmission Date: 20041129
  Serious: Yes (Other)
  Sender: FDA-Public Use
  Company Number: US-BRISTOL-MYERS SQUIBB COMPANY-12376349

PATIENT
  Age: 36 Year
  Sex: Female
  Weight: 135 kg

DRUGS (5)
  1. SERZONE [Suspect]
     Indication: DEPRESSION
     Dosage: STARTED ON 1/2 TAB BID FOR 1 WEEK, THEN INCREASED TO 1 TAB BID.
     Route: 048
  2. XANAX [Concomitant]
  3. AVAPRO [Concomitant]
  4. VIOXX [Concomitant]
  5. PREMARIN [Concomitant]

REACTIONS (1)
  - HEPATITIS [None]
